FAERS Safety Report 9717776 (Version 2)
Quarter: 2013Q4

REPORT INFORMATION
  Report Type: Report from Study
  Country: IN (occurrence: IN)
  Receive Date: 20131127
  Receipt Date: 20131203
  Transmission Date: 20140711
  Serious: Yes (Life-Threatening, Hospitalization)
  Sender: FDA-Public Use
  Company Number: IN-GLAXOSMITHKLINE-B0947414A

PATIENT
  Age: 66 Year
  Sex: Male
  Weight: 42 kg

DRUGS (10)
  1. FLUTICASONE FUROATE [Suspect]
     Indication: CHRONIC OBSTRUCTIVE PULMONARY DISEASE
  2. METFORMIN HYDROCHLORIDE [Concomitant]
     Indication: HYPOGLYCAEMIA
     Dosage: 1000MG TWICE PER DAY
     Route: 048
  3. ASPIRIN [Concomitant]
     Indication: ANTIPLATELET THERAPY
     Dosage: 75MG PER DAY
     Route: 048
  4. GLIMEPIRIDE [Concomitant]
     Indication: HYPOGLYCAEMIA
     Dosage: 1MG TWICE PER DAY
     Route: 048
  5. AMLODIPIN [Concomitant]
     Indication: HYPERTENSION
     Dosage: 5MG PER DAY
     Route: 048
  6. ATORVASTATIN [Concomitant]
     Indication: ANGINA UNSTABLE
     Dosage: 10MG PER DAY
     Route: 048
     Dates: start: 20130621
  7. ISOSORBIDE DINITRATE [Concomitant]
     Indication: VASODILATATION
     Dosage: 10MG THREE TIMES PER DAY
     Route: 048
     Dates: start: 20130524
  8. ETOFYLLINE [Concomitant]
     Indication: DYSPNOEA
     Dosage: 100MG THREE TIMES PER DAY
     Route: 048
  9. UNKNOWN DRUG [Concomitant]
     Indication: PYREXIA
     Dosage: 200MG THREE TIMES PER DAY
     Route: 048
     Dates: start: 20130823, end: 20130829
  10. GUAIFENESIN + SALBUTAMOL [Concomitant]
     Indication: COUGH
     Route: 048
     Dates: start: 20130823

REACTIONS (1)
  - Dyspnoea [Recovered/Resolved]
